FAERS Safety Report 6074305-5 (Version None)
Quarter: 2009Q1

REPORT INFORMATION
  Report Type: 
  Country: None (occurrence: None)
  Receive Date: 20090211
  Receipt Date: 20090205
  Transmission Date: 20090719
  Serious: Yes (Other)
  Sender: FDA-Public Use
  Company Number: GB-ROXANE LABORATORIES, INC.-2009-RO-00126RO

PATIENT
  Age: 35 Year
  Sex: Female

DRUGS (5)
  1. DEXAMETHASONE TAB [Suspect]
     Indication: ADRENOGENITAL SYNDROME
     Dosage: .25MG
  2. DEXAMETHASONE TAB [Suspect]
     Dosage: .75MG
  3. FLORINEF ACETATE [Suspect]
     Indication: ADRENOGENITAL SYNDROME
     Dosage: 100MCG
  4. FLORINEF ACETATE [Suspect]
     Dosage: 150MG
  5. TOPAMAX [Suspect]
     Indication: CONVULSION
     Dosage: 100MG
     Dates: start: 20050301

REACTIONS (1)
  - ADRENAL INSUFFICIENCY [None]
